FAERS Safety Report 4426513-4 (Version None)
Quarter: 2004Q3

REPORT INFORMATION
  Report Type: 
  Country: None (occurrence: None)
  Receive Date: 20040812
  Receipt Date: 20040812
  Transmission Date: 20050211
  Serious: Yes (Hospitalization)
  Sender: FDA-Public Use
  Company Number: None

PATIENT
  Age: 52 Year
  Sex: Male
  Weight: 64.5 kg

DRUGS (11)
  1. ENALAPRIL [Suspect]
     Indication: CONGESTIVE CARDIOMYOPATHY
     Dosage: 5 MG   DAILY   ORAL
     Route: 048
  2. COMBIVENT [Concomitant]
  3. CARVEDILOL [Concomitant]
  4. DM/GUAIFENESIN [Concomitant]
  5. FLUNISOLIDE [Concomitant]
  6. NASANL SPRAY [Concomitant]
  7. GEMFIBROZIL [Concomitant]
  8. FUROSEMIDE [Concomitant]
  9. LORATADINE [Concomitant]
  10. SILDENAFIL [Concomitant]
  11. TERAZOSIN HCL [Concomitant]

REACTIONS (1)
  - ANGIONEUROTIC OEDEMA [None]
